FAERS Safety Report 4865797-5 (Version None)
Quarter: 2005Q4

REPORT INFORMATION
  Report Type: 
  Country: None (occurrence: None)
  Receive Date: 20051220
  Receipt Date: 20051212
  Transmission Date: 20060501
  Serious: No
  Sender: FDA-Public Use
  Company Number: 2005-135685-NL

PATIENT
  Age: 62 Year
  Sex: Female

DRUGS (6)
  1. DEXAMETHASONE SODIUM PHOSPHATE [Suspect]
     Dosage: 5 ML INTRAVENOUS (NOS)
     Route: 042
     Dates: start: 20010530
  2. GANISETRON HYDROCHLORIDE [Concomitant]
  3. FAMOTIDINE [Concomitant]
  4. DIPHENHYDRAMINE HCL [Concomitant]
  5. TAXOL [Concomitant]
  6. CARBOPLATIN [Concomitant]

REACTIONS (2)
  - ANAPHYLACTIC SHOCK [None]
  - FAECAL INCONTINENCE [None]
